FAERS Safety Report 20868928 (Version 2)
Quarter: 2022Q2

REPORT INFORMATION
  Report Type: Report from Study
  Country: US (occurrence: US)
  Receive Date: 20220524
  Receipt Date: 20220616
  Transmission Date: 20220720
  Serious: Yes (Other)
  Sender: FDA-Public Use
  Company Number: US-HORIZON THERAPEUTICS-HZN-2022-001733

PATIENT

DRUGS (3)
  1. TEPEZZA [Suspect]
     Active Substance: TEPROTUMUMAB-TRBW
     Indication: Endocrine ophthalmopathy
     Dosage: FIRST DOSE
     Route: 042
     Dates: start: 20220218
  2. TEPEZZA [Suspect]
     Active Substance: TEPROTUMUMAB-TRBW
     Dosage: 3RD INFUSION
     Route: 042
  3. TEPEZZA [Suspect]
     Active Substance: TEPROTUMUMAB-TRBW
     Dosage: 4TH INFUSION
     Route: 042

REACTIONS (10)
  - Rectal haemorrhage [Recovering/Resolving]
  - Epistaxis [Recovering/Resolving]
  - Hypertension [Not Recovered/Not Resolved]
  - Toothache [Recovering/Resolving]
  - Decreased appetite [Recovering/Resolving]
  - Nail bed disorder [Not Recovered/Not Resolved]
  - Muscle spasms [Not Recovered/Not Resolved]
  - Pigmentation disorder [Not Recovered/Not Resolved]
  - Condition aggravated [Recovering/Resolving]
  - Nail infection [Unknown]
